FAERS Safety Report 8443750-2 (Version None)
Quarter: 2012Q2

REPORT INFORMATION
  Report Type: 
  Country: None (occurrence: None)
  Receive Date: 20120618
  Receipt Date: 20120605
  Transmission Date: 20120825
  Serious: Yes (Other)
  Sender: FDA-Public Use
  Company Number: CA-ELI_LILLY_AND_COMPANY-CA201206001816

PATIENT
  Sex: Female

DRUGS (5)
  1. CYMBALTA [Suspect]
     Dosage: 30 MG, UNK
     Route: 048
  2. CYMBALTA [Suspect]
     Indication: FIBROMYALGIA
     Dosage: 30 MG, UNK
     Route: 048
  3. CYMBALTA [Suspect]
     Dosage: 60 MG, UNK
     Route: 048
  4. CYMBALTA [Suspect]
     Dosage: 15 MG, UNK
     Route: 048
  5. CYMBALTA [Suspect]
     Dosage: 20 MG, UNK
     Route: 048

REACTIONS (15)
  - VISUAL IMPAIRMENT [None]
  - WRONG TECHNIQUE IN DRUG USAGE PROCESS [None]
  - FLATULENCE [None]
  - INTENTIONAL DRUG MISUSE [None]
  - BLINDNESS [None]
  - OFF LABEL USE [None]
  - HYPERHIDROSIS [None]
  - SOMNOLENCE [None]
  - GASTROOESOPHAGEAL REFLUX DISEASE [None]
  - DRUG WITHDRAWAL SYNDROME [None]
  - RESTLESS LEGS SYNDROME [None]
  - MUSCLE TIGHTNESS [None]
  - NAUSEA [None]
  - DIZZINESS [None]
  - DIARRHOEA [None]
